FAERS Safety Report 5414553-8 (Version None)
Quarter: 2007Q3

REPORT INFORMATION
  Report Type: 
  Country: None (occurrence: None)
  Receive Date: 20070713
  Receipt Date: 20070509
  Transmission Date: 20080115
  Serious: Yes (Other)
  Sender: FDA-Public Use
  Company Number: US-JNJFOC-20061003091

PATIENT
  Age: 16 Year
  Sex: Female
  Weight: 61.2356 kg

DRUGS (3)
  1. ORTHO EVRA [Suspect]
     Indication: DYSMENORRHOEA
     Dosage: TRANSDERMAL
     Route: 062
     Dates: start: 20030801, end: 20051015
  2. ORTHO EVRA [Suspect]
     Indication: MENORRHAGIA
     Dosage: TRANSDERMAL
     Route: 062
     Dates: start: 20030801, end: 20051015
  3. KEPPRA [Concomitant]

REACTIONS (1)
  - DEEP VEIN THROMBOSIS [None]
